FAERS Safety Report 10096682 (Version 2)
Quarter: 2014Q2

REPORT INFORMATION
  Report Type: Spontaneous
  Country: US (occurrence: US)
  Receive Date: 20140422
  Receipt Date: 20140512
  Transmission Date: 20141212
  Serious: No
  Sender: FDA-Public Use
  Company Number: US-PFIZER INC-2014110480

PATIENT
  Age: 70 Year
  Sex: Female

DRUGS (2)
  1. ESTRING [Suspect]
     Indication: MUCOSAL ATROPHY
     Dosage: UNK
     Route: 067
     Dates: start: 2013
  2. ESTRING [Suspect]
     Indication: URINARY TRACT INFECTION
     Dosage: UNK MG, UNK
     Route: 067
     Dates: start: 20140404, end: 20140414

REACTIONS (2)
  - Stress urinary incontinence [Recovered/Resolved]
  - Product quality issue [Not Recovered/Not Resolved]
